FAERS Safety Report 11681902 (Version 11)
Quarter: 2017Q2

REPORT INFORMATION
  Report Type: Report from Study
  Country: CA (occurrence: CA)
  Receive Date: 20151029
  Receipt Date: 20170601
  Transmission Date: 20170829
  Serious: Yes (Hospitalization, Other)
  Sender: FDA-Public Use
  Company Number: PHHY2014CA086345

PATIENT
  Age: 53 Year
  Sex: Female

DRUGS (4)
  1. SANDOSTATIN LAR DEPOT [Suspect]
     Active Substance: OCTREOTIDE ACETATE
     Dosage: 40 MG, TIW (EVERY 03 WEEKS)
     Route: 030
     Dates: start: 20120229
  2. SANDOSTATIN LAR DEPOT [Suspect]
     Active Substance: OCTREOTIDE ACETATE
     Indication: ACROMEGALY
     Dosage: 40 MG, TIW (EVERY 03 WEEKS)
     Route: 030
     Dates: start: 20011017
  3. VITAMIN B12 [Concomitant]
     Active Substance: CYANOCOBALAMIN
     Indication: PRODUCT USED FOR UNKNOWN INDICATION
     Dosage: 1000 MG, UNK
     Route: 065
  4. LISINOPRIL. [Concomitant]
     Active Substance: LISINOPRIL
     Indication: PRODUCT USED FOR UNKNOWN INDICATION
     Dosage: 20 MG, QD (IN THE AM)
     Route: 048

REACTIONS (32)
  - Glycosylated haemoglobin increased [Unknown]
  - Cortisol abnormal [Unknown]
  - Weight decreased [Unknown]
  - Sinusitis [Recovered/Resolved]
  - Fall [Unknown]
  - Mobility decreased [Unknown]
  - Weight bearing difficulty [Unknown]
  - Body temperature decreased [Unknown]
  - Balance disorder [Unknown]
  - Inappropriate schedule of drug administration [Unknown]
  - Upper respiratory tract infection [Unknown]
  - Blood pressure diastolic decreased [Unknown]
  - Anaemia [Unknown]
  - Gastrointestinal disorder [Unknown]
  - Rib fracture [Unknown]
  - Cough [Unknown]
  - Ankle fracture [Unknown]
  - Fibula fracture [Unknown]
  - Pancreatic mass [Unknown]
  - Jaundice [Recovering/Resolving]
  - Blood pressure systolic increased [Unknown]
  - Viral upper respiratory tract infection [Unknown]
  - Discomfort [Unknown]
  - Arthralgia [Recovered/Resolved]
  - Fatigue [Unknown]
  - Lower respiratory tract infection [Unknown]
  - Blood potassium increased [Unknown]
  - Haemoglobin decreased [Unknown]
  - Influenza [Unknown]
  - Bile duct obstruction [Unknown]
  - Musculoskeletal pain [Recovered/Resolved]
  - Headache [Unknown]

NARRATIVE: CASE EVENT DATE: 20011017
